FAERS Safety Report 8349850 (Version 3)
Quarter: 2012Q4

REPORT INFORMATION
  Report Type: 
  Country: JP (occurrence: JP)
  Receive Date: 20120123
  Receipt Date: 20121102
  Transmission Date: 20130627
  Serious: Yes (Death, Hospitalization)
  Sender: FDA-Public Use
  Company Number: JP-PFIZER INC-2012012306

PATIENT
  Age: 77 Year
  Sex: Male
  Weight: 69.8 kg

DRUGS (2)
  1. TEMSIROLIMUS [Suspect]
     Indication: METASTATIC RENAL CELL CARCINOMA
     Dosage: 25 mg, weekly
     Route: 042
     Dates: start: 20110927, end: 20111213
  2. RESTAMIN [Concomitant]
     Indication: ANTIHISTAMINE THERAPY
     Dosage: 50 mg, weekly
     Route: 048
     Dates: start: 20110927, end: 20111213

REACTIONS (5)
  - Herpes zoster [Recovered/Resolved]
  - Interstitial lung disease [Not Recovered/Not Resolved]
  - Cardio-respiratory arrest [Fatal]
  - Disease progression [Fatal]
  - Metastatic renal cell carcinoma [Fatal]
